FAERS Safety Report 9927349 (Version 1)
Quarter: 2014Q1

REPORT INFORMATION
  Report Type: Spontaneous
  Country: NG (occurrence: NG)
  Receive Date: 20140226
  Receipt Date: 20140226
  Transmission Date: 20141002
  Serious: Yes (Other)
  Sender: FDA-Public Use
  Company Number: NG-SPECTRUM PHARMACEUTICALS, INC.-14-F-NG-00034

PATIENT
  Age: 68 Year
  Sex: Male

DRUGS (3)
  1. FLUOROURACIL [Suspect]
     Indication: PANCREATIC CARCINOMA
     Route: 042
  2. CISPLATIN [Suspect]
     Indication: PANCREATIC CARCINOMA
  3. ADRIAMYCIN [Suspect]
     Indication: PANCREATIC CARCINOMA

REACTIONS (1)
  - Necrotising fasciitis [Recovered/Resolved]
